FAERS Safety Report 8068084-X (Version None)
Quarter: 2012Q1

REPORT INFORMATION
  Report Type: 
  Country: None (occurrence: None)
  Receive Date: 20120124
  Receipt Date: 20110920
  Transmission Date: 20120608
  Serious: No
  Sender: FDA-Public Use
  Company Number: US-AMGEN-USASP2011048555

PATIENT
  Age: 77 Year
  Sex: Female

DRUGS (10)
  1. PROLIA [Suspect]
     Indication: OSTEOPOROSIS
     Dosage: 60 MG, Q6MO
     Dates: start: 20110101
  2. SPIRONOLACTONE [Concomitant]
  3. TORSEMIDE [Concomitant]
  4. ALLOPURINOL [Concomitant]
  5. LIPITOR [Concomitant]
  6. CALCIUM + VITAMIN D                /01483701/ [Concomitant]
  7. CARVEDILOL [Concomitant]
  8. POTASSIUM CHLORIDE [Concomitant]
  9. VITAMIN D [Concomitant]
  10. OMEPRAZOLE [Concomitant]

REACTIONS (3)
  - MYALGIA [None]
  - BONE PAIN [None]
  - PAIN IN EXTREMITY [None]
